FAERS Safety Report 16795328 (Version 1)
Quarter: 2019Q3

REPORT INFORMATION
  Report Type: Spontaneous
  Country: BR (occurrence: BR)
  Receive Date: 20190911
  Receipt Date: 20190911
  Transmission Date: 20191005
  Serious: Yes (Other)
  Sender: FDA-Public Use
  Company Number: BR-ABBVIE-19K-020-2915589-00

PATIENT
  Age: 55 Year
  Sex: Female
  Weight: 64 kg

DRUGS (2)
  1. METHOTREXATE. [Concomitant]
     Active Substance: METHOTREXATE
     Indication: RHEUMATOID ARTHRITIS
     Route: 048
     Dates: start: 2013
  2. HUMIRA [Suspect]
     Active Substance: ADALIMUMAB
     Indication: RHEUMATOID ARTHRITIS
     Route: 058
     Dates: start: 2013, end: 20190810

REACTIONS (14)
  - Product storage error [Unknown]
  - Cardiac ventricular disorder [Recovering/Resolving]
  - Arthralgia [Recovering/Resolving]
  - Left ventricular hypertrophy [Not Recovered/Not Resolved]
  - Cardiac disorder [Recovering/Resolving]
  - Hypertension [Recovering/Resolving]
  - Blood triglycerides increased [Recovered/Resolved]
  - Therapeutic product effect incomplete [Unknown]
  - Chikungunya virus infection [Not Recovered/Not Resolved]
  - Malaise [Recovering/Resolving]
  - Dyslipidaemia [Recovering/Resolving]
  - Rash macular [Recovered/Resolved]
  - Left ventricular dysfunction [Not Recovered/Not Resolved]
  - Aortic disorder [Unknown]

NARRATIVE: CASE EVENT DATE: 201902
